FAERS Safety Report 24206316 (Version 1)
Quarter: 2024Q3

REPORT INFORMATION
  Report Type: Spontaneous
  Country: US (occurrence: None)
  Receive Date: 20240812
  Receipt Date: 20240812
  Transmission Date: 20241017
  Serious: Yes (Death)
  Sender: Public
  Company Number: None

PATIENT
  Age: 70 Year
  Sex: Male

DRUGS (1)
  1. REPATHA [Suspect]
     Active Substance: EVOLOCUMAB
     Dosage: 2 M; EVERY 2 WEEKS SUBCUTANEOUS?
     Route: 058
     Dates: start: 20230522, end: 20240728

REACTIONS (1)
  - Death [None]

NARRATIVE: CASE EVENT DATE: 20240728
